FAERS Safety Report 6565119-8 (Version None)
Quarter: 2010Q1

REPORT INFORMATION
  Report Type: 
  Country: None (occurrence: None)
  Receive Date: 20100201
  Receipt Date: 20100121
  Transmission Date: 20100710
  Serious: Yes (Congenital Anomaly)
  Sender: FDA-Public Use
  Company Number: A0841945A

PATIENT
  Sex: Male
  Weight: 2.1 kg

DRUGS (6)
  1. RETROVIR [Suspect]
     Indication: ANTIRETROVIRAL THERAPY
     Dosage: 2MGKH PER DAY
     Dates: start: 20090929, end: 20090929
  2. KALETRA [Suspect]
     Indication: ANTIRETROVIRAL THERAPY
     Dosage: 4TABS PER DAY
     Dates: start: 20090410, end: 20090715
  3. TRUVADA [Suspect]
     Indication: ANTIRETROVIRAL THERAPY
     Dosage: 1TAB PER DAY
     Dates: start: 20090410, end: 20090929
  4. REYATAZ [Suspect]
     Indication: ANTIRETROVIRAL THERAPY
     Dosage: 400MGD PER DAY
     Dates: start: 20090715, end: 20090910
  5. NORVIR [Suspect]
     Indication: ANTIRETROVIRAL THERAPY
     Dosage: 100MGD PER DAY
     Dates: start: 20090715, end: 20090929
  6. PREZISTA [Suspect]
     Indication: ANTIRETROVIRAL THERAPY
     Dosage: 800MGD PER DAY
     Dates: start: 20090910, end: 20090929

REACTIONS (5)
  - CONGENITAL ANOMALY [None]
  - DRUG EXPOSURE DURING PREGNANCY [None]
  - FOETAL MALNUTRITION [None]
  - MATERNAL DRUGS AFFECTING FOETUS [None]
  - SMALL FOR DATES BABY [None]
